FAERS Safety Report 24147242 (Version 1)
Quarter: 2024Q3

REPORT INFORMATION
  Report Type: Spontaneous
  Country: CN (occurrence: CN)
  Receive Date: 20240729
  Receipt Date: 20240729
  Transmission Date: 20241017
  Serious: Yes (Life-Threatening, Hospitalization, Other)
  Sender: AMGEN
  Company Number: CN-MLMSERVICE-20240708-PI125005-00232-1

PATIENT
  Age: 11 Year
  Sex: Male

DRUGS (10)
  1. ETANERCEPT [Suspect]
     Active Substance: ETANERCEPT
     Indication: Graft versus host disease
     Dosage: 12.5 MILLIGRAM, 2 TIMES/WK
     Route: 065
     Dates: start: 2022, end: 2022
  2. METHYLPREDNISOLONE [Suspect]
     Active Substance: METHYLPREDNISOLONE
     Indication: Graft versus host disease
     Dosage: 2 MG/KG, 1X/DAY
     Route: 065
     Dates: start: 2022, end: 2022
  3. METHOTREXATE SODIUM [Suspect]
     Active Substance: METHOTREXATE SODIUM
     Indication: Prophylaxis against graft versus host disease
     Dosage: UNK (SHORT-TERM)
     Route: 065
     Dates: start: 2022, end: 2022
  4. FLUDARABINE [Suspect]
     Active Substance: FLUDARABINE PHOSPHATE
     Indication: Bone marrow conditioning regimen
     Dosage: 30 MG/KG, 1X/DAY FROM DAY -11 TO DAY -7
     Route: 065
     Dates: start: 2022, end: 2022
  5. BUSULFAN [Suspect]
     Active Substance: BUSULFAN
     Indication: Bone marrow conditioning regimen
     Dosage: 3.2 MG/KG, 1X/DAY FROM DAY -9 TO DAY -7
     Route: 065
     Dates: start: 2022, end: 2022
  6. CYCLOPHOSPHAMIDE [Suspect]
     Active Substance: CYCLOPHOSPHAMIDE
     Indication: Bone marrow conditioning regimen
     Dosage: 60 MG/KG, 1X/DAY FROM DAY -6 TO DAY -5
     Route: 065
     Dates: start: 2022, end: 2022
  7. LAPINE T-LYMPHOCYTE IMMUNE GLOBULIN [Suspect]
     Active Substance: LAPINE T-LYMPHOCYTE IMMUNE GLOBULIN
     Indication: Bone marrow conditioning regimen
     Dosage: 2.5 MG/KG, 1X/DAY FROM DAY -4 TO DAY -2
     Route: 065
     Dates: start: 2022, end: 2022
  8. MYCOPHENOLATE MOFETIL [Suspect]
     Active Substance: MYCOPHENOLATE MOFETIL
     Indication: Prophylaxis against graft versus host disease
     Dosage: UNK (SHORT-TERM)
     Route: 065
     Dates: start: 2022, end: 2022
  9. CYCLOSPORINE [Suspect]
     Active Substance: CYCLOSPORINE
     Indication: Prophylaxis against graft versus host disease
     Dosage: UNK (SHORT-TERM)
     Route: 065
     Dates: start: 2022, end: 2022
  10. BASILIXIMAB [Suspect]
     Active Substance: BASILIXIMAB
     Indication: Graft versus host disease
     Dosage: 10 MG, 1X/DAY +1, +3, +8
     Route: 065
     Dates: start: 2022, end: 2022

REACTIONS (9)
  - Haemophagocytic lymphohistiocytosis [Recovered/Resolved]
  - Adenovirus infection [Recovered/Resolved]
  - Cystitis haemorrhagic [Recovering/Resolving]
  - Immunosuppression [Recovering/Resolving]
  - Cytomegalovirus infection [Unknown]
  - Epstein-Barr virus infection [Unknown]
  - BK virus infection [Recovering/Resolving]
  - Off label use [Unknown]
  - Drug effective for unapproved indication [Unknown]

NARRATIVE: CASE EVENT DATE: 20220101
